FAERS Safety Report 11231123 (Version 1)
Quarter: 2015Q2

REPORT INFORMATION
  Report Type: Spontaneous
  Country: US (occurrence: None)
  Receive Date: 20150629
  Receipt Date: 20150629
  Transmission Date: 20150821
  Serious: Yes (Disabling)
  Sender: FDA-Public Use
  Company Number: None

PATIENT
  Age: 39 Year
  Sex: Female
  Weight: 63.5 kg

DRUGS (3)
  1. EFFEXOR [Concomitant]
     Active Substance: VENLAFAXINE HYDROCHLORIDE
  2. LEVOFLOXACIN. [Suspect]
     Active Substance: LEVOFLOXACIN
     Indication: URINARY TRACT INFECTION
     Dosage: 1 PER DAY FOR 5 DAYS
     Route: 048
     Dates: start: 20150617, end: 20150621
  3. WOMEN^S ONE A DAY MULTIVITAMIN [Concomitant]

REACTIONS (8)
  - Pain in extremity [None]
  - Tendon disorder [None]
  - Tendon injury [None]
  - Paraesthesia [None]
  - Neuropathy peripheral [None]
  - Peripheral swelling [None]
  - Pain [None]
  - Peripheral coldness [None]

NARRATIVE: CASE EVENT DATE: 20150624
